FAERS Safety Report 9078639 (Version 1)
Quarter: 2013Q1

REPORT INFORMATION
  Report Type: Report from Study
  Country: CN (occurrence: CN)
  Receive Date: 20130130
  Receipt Date: 20130130
  Transmission Date: 20140127
  Serious: Yes (Death)
  Sender: FDA-Public Use
  Company Number: CN-ROCHE-1185536

PATIENT
  Sex: Female
  Weight: 50 kg

DRUGS (1)
  1. BEVACIZUMAB [Suspect]
     Indication: RECTAL CANCER METASTATIC
     Route: 042
     Dates: start: 20121018

REACTIONS (1)
  - Disease progression [Fatal]
